FAERS Safety Report 24184185 (Version 1)
Quarter: 2024Q3

REPORT INFORMATION
  Report Type: Report from Study
  Country: US (occurrence: US)
  Receive Date: 20240807
  Receipt Date: 20240807
  Transmission Date: 20241017
  Serious: Yes (Other)
  Sender: AURINIA PHARMACEUTICALS
  Company Number: US-OTSUKA PHARMACEUTICAL NETHERLANDS B.V.-AUR-006383

PATIENT
  Age: 37 Year
  Sex: Female

DRUGS (2)
  1. LUPKYNIS [Suspect]
     Active Substance: VOCLOSPORIN
     Indication: Lupus nephritis
     Dosage: 23.7 MILLIGRAM, BID
     Route: 048
     Dates: start: 20210810
  2. LISINOPRIL [Suspect]
     Active Substance: LISINOPRIL
     Indication: Product used for unknown indication

REACTIONS (3)
  - Hyperkalaemia [Unknown]
  - Hypertension [Recovered/Resolved]
  - Glomerular filtration rate decreased [Unknown]

NARRATIVE: CASE EVENT DATE: 20231211
